FAERS Safety Report 18957089 (Version 2)
Quarter: 2021Q1

REPORT INFORMATION
  Report Type: Report from Study
  Country: US (occurrence: US)
  Receive Date: 20210302
  Receipt Date: 20210311
  Transmission Date: 20210420
  Serious: Yes (Hospitalization, Other)
  Sender: FDA-Public Use
  Company Number: US-GILEAD-2021-0519052

PATIENT
  Age: 48 Year
  Sex: Female

DRUGS (3)
  1. AMBRISENTAN [Suspect]
     Active Substance: AMBRISENTAN
     Indication: PULMONARY HYPERTENSION
     Dosage: 5 MG, QD
     Route: 065
     Dates: start: 20190504
  2. REMODULIN [Suspect]
     Active Substance: TREPROSTINIL
     Indication: PULMONARY HYPERTENSION
     Dosage: 34 NG, Q1SECOND
     Route: 065
     Dates: start: 20190709
  3. REMODULIN [Suspect]
     Active Substance: TREPROSTINIL
     Dosage: 34 G
     Route: 065
     Dates: start: 20190706

REACTIONS (2)
  - Localised infection [Unknown]
  - Cellulitis [Unknown]
